FAERS Safety Report 9613205 (Version 1)
Quarter: 2013Q4

REPORT INFORMATION
  Report Type: Spontaneous
  Country: FR (occurrence: FR)
  Receive Date: 20131010
  Receipt Date: 20131010
  Transmission Date: 20140711
  Serious: Yes (Hospitalization)
  Sender: FDA-Public Use
  Company Number: FR-ABBVIE-13P-056-1156066-00

PATIENT
  Age: 84 Year
  Sex: Female

DRUGS (17)
  1. DEPAKOTE [Suspect]
     Indication: PRODUCT USED FOR UNKNOWN INDICATION
     Route: 048
     Dates: end: 20130828
  2. ORBENINE [Suspect]
     Indication: ARTHRALGIA
     Route: 042
     Dates: start: 20130824, end: 20130828
  3. ORBENINE [Suspect]
     Indication: JOINT SWELLING
  4. ORBENINE [Suspect]
     Indication: ERYTHEMA
  5. ORBENINE [Suspect]
     Indication: PYREXIA
  6. ORBENINE [Suspect]
     Indication: TACHYCARDIA
  7. RISPERDAL [Suspect]
     Indication: PRODUCT USED FOR UNKNOWN INDICATION
     Route: 048
     Dates: start: 20130724, end: 20130828
  8. INIPOMP [Suspect]
     Indication: PRODUCT USED FOR UNKNOWN INDICATION
     Route: 048
     Dates: end: 20130828
  9. FEMARA [Concomitant]
     Indication: PRODUCT USED FOR UNKNOWN INDICATION
  10. LEVOTHYROX [Concomitant]
     Indication: PRODUCT USED FOR UNKNOWN INDICATION
  11. TAHOR [Concomitant]
     Indication: PRODUCT USED FOR UNKNOWN INDICATION
  12. AMAREL [Concomitant]
     Indication: PRODUCT USED FOR UNKNOWN INDICATION
  13. PREVISCAN [Concomitant]
     Indication: PRODUCT USED FOR UNKNOWN INDICATION
  14. SERESTA [Concomitant]
     Indication: PRODUCT USED FOR UNKNOWN INDICATION
  15. ANAFRANIL [Concomitant]
     Indication: PRODUCT USED FOR UNKNOWN INDICATION
  16. SPECIAFOLDINE [Concomitant]
     Indication: PRODUCT USED FOR UNKNOWN INDICATION
  17. ATARAX [Concomitant]
     Indication: PRODUCT USED FOR UNKNOWN INDICATION

REACTIONS (4)
  - Renal failure acute [Recovering/Resolving]
  - Urinary retention [Recovered/Resolved]
  - Somnolence [Recovered/Resolved]
  - Creatinine renal clearance abnormal [Unknown]
